FAERS Safety Report 16036341 (Version 1)
Quarter: 2019Q1

REPORT INFORMATION
  Report Type: Spontaneous
  Country: US (occurrence: US)
  Receive Date: 20190305
  Receipt Date: 20190305
  Transmission Date: 20190418
  Serious: No
  Sender: FDA-Public Use
  Company Number: US-ALLERGAN-1837316US

PATIENT
  Age: 85 Year
  Sex: Female
  Weight: 58.96 kg

DRUGS (4)
  1. LUTEIN [Concomitant]
     Active Substance: LUTEIN
     Indication: OCULAR DISCOMFORT
     Dosage: UNK
     Route: 047
  2. DIGOXIN. [Concomitant]
     Active Substance: DIGOXIN
     Indication: HEART RATE IRREGULAR
     Dosage: UNK
  3. OCUVITE [Concomitant]
     Active Substance: VITAMINS
     Indication: OCULAR DISCOMFORT
     Dosage: UNK
     Route: 047
  4. ESTRACE [Suspect]
     Active Substance: ESTRADIOL
     Indication: VAGINAL DISORDER
     Dosage: 1/2 GRAM, TWICE A WEEK
     Route: 065
     Dates: start: 2015

REACTIONS (3)
  - Off label use [Unknown]
  - Blood glucose increased [Not Recovered/Not Resolved]
  - Alopecia [Not Recovered/Not Resolved]

NARRATIVE: CASE EVENT DATE: 201802
